FAERS Safety Report 6520955-9 (Version None)
Quarter: 2009Q4

REPORT INFORMATION
  Report Type: 
  Country: None (occurrence: None)
  Receive Date: 20091229
  Receipt Date: 20091216
  Transmission Date: 20100525
  Serious: Yes (Hospitalization)
  Sender: FDA-Public Use
  Company Number: DE-AMGEN-US381612

PATIENT
  Age: 61 Year
  Sex: Female

DRUGS (10)
  1. ENBREL [Suspect]
     Indication: RHEUMATOID ARTHRITIS
     Route: 058
     Dates: start: 20090507, end: 20091001
  2. ENBREL [Suspect]
     Indication: POLYARTHRITIS
     Route: 058
     Dates: start: 20091101
  3. ALENDRONATE SODIUM [Concomitant]
     Indication: OSTEOPOROSIS
     Route: 048
  4. CALCIUM [Concomitant]
     Route: 065
  5. METOHEXAL [Concomitant]
     Route: 065
  6. MARCUMAR [Concomitant]
     Route: 065
  7. OMEPRAZOLE [Concomitant]
     Route: 048
  8. AMIODARONE HYDROCHLORIDE [Concomitant]
     Route: 065
  9. ARAVA [Concomitant]
  10. SPIRIVA [Concomitant]
     Route: 065

REACTIONS (3)
  - ARRHYTHMIA [None]
  - DYSPNOEA [None]
  - GASTRIC ULCER [None]
